FAERS Safety Report 23303217 (Version 1)
Quarter: 2023Q4

REPORT INFORMATION
  Report Type: Spontaneous
  Country: RU (occurrence: None)
  Receive Date: 20231215
  Receipt Date: 20231215
  Transmission Date: 20240110
  Serious: Yes (Other)
  Sender: FDA-Public Use
  Company Number: 2023A282529

PATIENT
  Sex: Female

DRUGS (6)
  1. NEXIUM [Suspect]
     Active Substance: ESOMEPRAZOLE MAGNESIUM
     Indication: Drug therapy
     Route: 048
  2. PULMICORT TURBUHALER [Suspect]
     Active Substance: BUDESONIDE
     Indication: Chronic obstructive pulmonary disease
  3. FENOTEROL HYDROBROMIDE\IPRATROPIUM BROMIDE [Concomitant]
     Active Substance: FENOTEROL HYDROBROMIDE\IPRATROPIUM BROMIDE
  4. AMBROXOL [Concomitant]
     Active Substance: AMBROXOL
  5. ELIQUIS [Concomitant]
     Active Substance: APIXABAN
  6. ACETYLCYSTEINE [Concomitant]
     Active Substance: ACETYLCYSTEINE

REACTIONS (8)
  - Bronchospasm [Unknown]
  - Suffocation feeling [Unknown]
  - Loss of consciousness [Unknown]
  - Fibrin D dimer increased [Unknown]
  - Mucosal disorder [Unknown]
  - Condition aggravated [Unknown]
  - Cough [Recovered/Resolved]
  - Off label use [Unknown]
